FAERS Safety Report 9024481 (Version 1)
Quarter: 2013Q1

REPORT INFORMATION
  Report Type: Spontaneous
  Country: FR (occurrence: FR)
  Receive Date: 20130121
  Receipt Date: 20130121
  Transmission Date: 20140127
  Serious: Yes (Life-Threatening)
  Sender: FDA-Public Use
  Company Number: FR-JNJFOC-20130108065

PATIENT
  Age: 57 Year
  Sex: Male

DRUGS (4)
  1. TOPALGIC [Suspect]
     Indication: PRODUCT USED FOR UNKNOWN INDICATION
     Route: 048
     Dates: start: 20120810, end: 20120815
  2. CEFTRIAXONE [Suspect]
     Indication: LUNG DISORDER
     Route: 042
     Dates: start: 20120810, end: 20120813
  3. INEXIUM [Suspect]
     Indication: PRODUCT USED FOR UNKNOWN INDICATION
     Route: 048
     Dates: start: 20120810, end: 20120815
  4. CIPROFLOXACINE [Suspect]
     Indication: LUNG DISORDER
     Route: 048
     Dates: start: 20120810, end: 20120815

REACTIONS (1)
  - Lung disorder [Recovered/Resolved]
